FAERS Safety Report 5033281-4 (Version None)
Quarter: 2006Q2

REPORT INFORMATION
  Report Type: 
  Country: None (occurrence: None)
  Receive Date: 20060623
  Receipt Date: 20051110
  Transmission Date: 20061013
  Serious: Yes (Other)
  Sender: FDA-Public Use
  Company Number: PHRM2005FR02959

PATIENT
  Sex: Male

DRUGS (3)
  1. AREDIA [Suspect]
     Indication: MULTIPLE MYELOMA
     Dosage: 90 MG, QMO
     Route: 042
     Dates: start: 20010301, end: 20020801
  2. ZOMETA [Suspect]
     Indication: MULTIPLE MYELOMA
     Dosage: 2 COURSES WITH 4 MONTHS OF INTERVAL
     Route: 042
     Dates: start: 20050101
  3. ZOMETA [Suspect]
     Dosage: 4 MG, QMO
     Route: 042
     Dates: start: 20021001, end: 20041201

REACTIONS (3)
  - OSTEONECROSIS [None]
  - RENAL FAILURE [None]
  - TOOTH EXTRACTION [None]
